FAERS Safety Report 8623249-0 (Version None)
Quarter: 2012Q3

REPORT INFORMATION
  Report Type: 
  Country: None (occurrence: None)
  Receive Date: 20120827
  Receipt Date: 20120821
  Transmission Date: 20120928
  Serious: Yes (Death)
  Sender: FDA-Public Use
  Company Number: US-US-EMD SERONO, INC.-7157013

PATIENT
  Sex: Male
  Weight: 62 kg

DRUGS (15)
  1. VALTREX [Concomitant]
     Indication: PRODUCT USED FOR UNKNOWN INDICATION
  2. SEROSTIM [Suspect]
     Indication: CACHEXIA
     Route: 058
     Dates: start: 20070319, end: 20110802
  3. PREVACID [Concomitant]
     Indication: PRODUCT USED FOR UNKNOWN INDICATION
  4. TESTOSTERONE CYPIONATE [Concomitant]
     Indication: PRODUCT USED FOR UNKNOWN INDICATION
     Route: 030
  5. TRUVADA [Concomitant]
     Indication: PRODUCT USED FOR UNKNOWN INDICATION
     Dosage: 300/200
  6. PRISTIQ [Concomitant]
     Indication: PRODUCT USED FOR UNKNOWN INDICATION
  7. TRUVADA [Concomitant]
  8. PREZISTA [Concomitant]
     Indication: PRODUCT USED FOR UNKNOWN INDICATION
  9. NORVIR [Concomitant]
     Indication: PRODUCT USED FOR UNKNOWN INDICATION
  10. CONCERTA [Concomitant]
     Indication: PRODUCT USED FOR UNKNOWN INDICATION
  11. PRINIVIL [Concomitant]
     Indication: PRODUCT USED FOR UNKNOWN INDICATION
  12. INTELENCE [Concomitant]
     Indication: PRODUCT USED FOR UNKNOWN INDICATION
  13. LIPITOR [Concomitant]
     Indication: PRODUCT USED FOR UNKNOWN INDICATION
  14. PROPRANOLOL [Concomitant]
     Indication: PRODUCT USED FOR UNKNOWN INDICATION
  15. GLUCOPHAGE [Concomitant]
     Indication: PRODUCT USED FOR UNKNOWN INDICATION

REACTIONS (2)
  - VARICES OESOPHAGEAL [None]
  - CHRONIC HEPATITIS [None]
